FAERS Safety Report 7084393-5 (Version None)
Quarter: 2010Q4

REPORT INFORMATION
  Report Type: 
  Country: None (occurrence: None)
  Receive Date: 20101104
  Receipt Date: 20101028
  Transmission Date: 20110411
  Serious: Yes (Hospitalization)
  Sender: FDA-Public Use
  Company Number: GB-PFIZER INC-2010137811

PATIENT
  Age: 49 Year
  Sex: Female

DRUGS (11)
  1. SULFASALAZINE [Suspect]
     Indication: RHEUMATOID ARTHRITIS
     Dosage: UNK
     Route: 048
     Dates: start: 20100922, end: 20100924
  2. SULFASALAZINE [Suspect]
     Dosage: 1 DF, 1X/DAY
     Route: 048
  3. SULFASALAZINE [Suspect]
     Dosage: UNK
     Route: 048
  4. SULFASALAZINE [Suspect]
     Dosage: UNK
     Route: 048
  5. CITALOPRAM [Concomitant]
  6. CLONAZEPAM [Concomitant]
  7. CO-CODAMOL [Concomitant]
  8. DOMPERIDONE [Concomitant]
  9. IBUPROFEN [Concomitant]
  10. REQUIP [Concomitant]
     Dosage: UNK
     Dates: start: 20100601
  11. ROPINIROLE [Concomitant]

REACTIONS (2)
  - NEUTROPENIC SEPSIS [None]
  - SWELLING FACE [None]
